FAERS Safety Report 8885651 (Version 1)
Quarter: 2012Q4

REPORT INFORMATION
  Report Type: 
  Country: ES (occurrence: ES)
  Receive Date: 20121101
  Receipt Date: 20121101
  Transmission Date: 20130627
  Serious: Yes (Other)
  Sender: FDA-Public Use
  Company Number: ES-PFIZER INC-2012268566

PATIENT
  Age: 78 Year
  Sex: Female

DRUGS (4)
  1. TOVIAZ [Suspect]
     Indication: URINARY INCONTINENCE
     Dosage: 8 mg, 1x/day
     Route: 048
     Dates: start: 20120524, end: 20120808
  2. SIMVASTATIN [Concomitant]
     Indication: DYSLIPIDEMIA
     Dosage: 20 mg, 1x/day
     Route: 048
     Dates: start: 20120307
  3. ESCITALOPRAM [Concomitant]
     Indication: DEPRESSION
     Dosage: 20 mg, 1x/day
     Route: 048
     Dates: start: 20111111
  4. AMERIDE [Concomitant]
     Indication: HYPERTENSION
     Dosage: 5 mg/ 50 mg, 1x/day
     Route: 048
     Dates: start: 20111220

REACTIONS (4)
  - Fluid retention [Recovered/Resolved]
  - Dizziness [Recovered/Resolved]
  - Headache [Recovered/Resolved]
  - Gait disturbance [Unknown]
